FAERS Safety Report 24596539 (Version 1)
Quarter: 2024Q4

REPORT INFORMATION
  Report Type: Spontaneous
  Country: US (occurrence: US)
  Receive Date: 20241110
  Receipt Date: 20241110
  Transmission Date: 20250115
  Serious: No
  Sender: SANOFI AVENTIS
  Company Number: US-SA-2024SA304085

PATIENT
  Age: 59 Year

DRUGS (1)
  1. DUPIXENT [Suspect]
     Active Substance: DUPILUMAB
     Dosage: UNK
     Dates: start: 20240726

REACTIONS (3)
  - Pyrexia [Unknown]
  - Fibromyalgia [Unknown]
  - Myalgia [Unknown]

NARRATIVE: CASE EVENT DATE: 20240726
